FAERS Safety Report 19721937 (Version 3)
Quarter: 2022Q4

REPORT INFORMATION
  Report Type: Spontaneous
  Country: CH (occurrence: CH)
  Receive Date: 20210819
  Receipt Date: 20221116
  Transmission Date: 20230112
  Serious: Yes (Hospitalization, Other)
  Sender: FDA-Public Use
  Company Number: CH-COLLEGIUM PHARMACEUTICAL, INC.-2021CGM00956

PATIENT

DRUGS (9)
  1. NUCYNTA ER [Suspect]
     Active Substance: TAPENTADOL HYDROCHLORIDE
     Indication: Product used for unknown indication
     Dosage: 350 MG, 1X/DAY
     Route: 065
     Dates: end: 20210716
  2. NUCYNTA ER [Suspect]
     Active Substance: TAPENTADOL HYDROCHLORIDE
     Dosage: 250 MG, 1X/DAY
     Route: 065
     Dates: start: 20210717, end: 20210718
  3. NUCYNTA ER [Suspect]
     Active Substance: TAPENTADOL HYDROCHLORIDE
     Dosage: 350 MG, 1X/DAY
     Route: 065
     Dates: start: 20210719, end: 20210722
  4. TRAMADOL [Suspect]
     Active Substance: TRAMADOL
     Indication: Product used for unknown indication
     Dosage: UNK, UNKNOWN
     Route: 065
     Dates: start: 20220722
  5. MORPHINE [Suspect]
     Active Substance: MORPHINE
     Indication: Product used for unknown indication
     Dosage: 0.5 MILLIGRAM, 6/DAY
  6. AMOXICILLIN\CLAVULANATE POTASSIUM [Suspect]
     Active Substance: AMOXICILLIN\CLAVULANATE POTASSIUM
     Dosage: 1.2 G, 4X/DAY
     Route: 042
     Dates: start: 20210716, end: 20210721
  7. PREGABALIN [Concomitant]
     Active Substance: PREGABALIN
     Dosage: UNK
  8. NALOXONE [Concomitant]
     Active Substance: NALOXONE
  9. OXYGEN [Concomitant]
     Active Substance: OXYGEN

REACTIONS (15)
  - Petit mal epilepsy [Unknown]
  - Hepatic cytolysis [Not Recovered/Not Resolved]
  - Cholestasis [Unknown]
  - Hepatic necrosis [Unknown]
  - Renal tubular disorder [Unknown]
  - Circulatory collapse [Unknown]
  - Myocardial ischaemia [Unknown]
  - Hypertensive heart disease [Unknown]
  - Pulmonary embolism [Unknown]
  - Miosis [Recovered/Resolved]
  - Confusional state [Not Recovered/Not Resolved]
  - Consciousness fluctuating [Not Recovered/Not Resolved]
  - Hypoxia [Not Recovered/Not Resolved]
  - Apnoea [Not Recovered/Not Resolved]
  - Analgesic drug level increased [Unknown]

NARRATIVE: CASE EVENT DATE: 20210701
